FAERS Safety Report 24340922 (Version 1)
Quarter: 2024Q3

REPORT INFORMATION
  Report Type: Spontaneous
  Country: CN (occurrence: CN)
  Receive Date: 20240919
  Receipt Date: 20240919
  Transmission Date: 20241017
  Serious: Yes (Other)
  Sender: GE HEALTHCARE
  Company Number: CN-GE HEALTHCARE-2024CSU010454

PATIENT
  Age: 45 Year
  Sex: Female
  Weight: 55.5 kg

DRUGS (2)
  1. OMNIPAQUE [Suspect]
     Active Substance: IOHEXOL
     Indication: Computerised tomogram head
     Dosage: 35 GM, TOTAL
     Route: 042
     Dates: start: 20240907, end: 20240907
  2. OMNIPAQUE [Suspect]
     Active Substance: IOHEXOL
     Indication: Computerised tomogram neck

REACTIONS (4)
  - Dysphagia [Recovered/Resolved]
  - Tonsillar hypertrophy [Unknown]
  - Pharyngeal swelling [Recovered/Resolved]
  - Laryngeal discomfort [Recovered/Resolved]

NARRATIVE: CASE EVENT DATE: 20240907
